FAERS Safety Report 10665934 (Version 8)
Quarter: 2018Q3

REPORT INFORMATION
  Report Type: Report from Study
  Country: US (occurrence: US)
  Receive Date: 20141219
  Receipt Date: 20180830
  Transmission Date: 20181010
  Serious: Yes (Hospitalization, Other)
  Sender: FDA-Public Use
  Company Number: US-ASTELLAS-2014US020331

PATIENT
  Age: 53 Year
  Sex: Female

DRUGS (6)
  1. TACROLIMUS. [Suspect]
     Active Substance: TACROLIMUS
     Indication: HEART TRANSPLANT
     Dosage: UNK UNK, UNKNOWN FREQ.
     Route: 065
  2. TACROLIMUS. [Suspect]
     Active Substance: TACROLIMUS
     Indication: HEART TRANSPLANT
     Route: 048
  3. TACROLIMUS. [Suspect]
     Active Substance: TACROLIMUS
     Indication: HEART TRANSPLANT
     Route: 048
  4. TACROLIMUS. [Suspect]
     Active Substance: TACROLIMUS
     Route: 048
  5. TACROLIMUS. [Suspect]
     Active Substance: TACROLIMUS
     Route: 048
  6. TACROLIMUS. [Suspect]
     Active Substance: TACROLIMUS
     Indication: HEART TRANSPLANT
     Dosage: 0.5 MG, TWICE DAILY
     Route: 048

REACTIONS (18)
  - Chronic kidney disease [Unknown]
  - Thrombosis [Unknown]
  - Malaise [Not Recovered/Not Resolved]
  - Cardiac disorder [Not Recovered/Not Resolved]
  - Hypertension [Recovering/Resolving]
  - Asthenia [Unknown]
  - Diabetes mellitus [Not Recovered/Not Resolved]
  - Drug hypersensitivity [Recovering/Resolving]
  - Fatigue [Unknown]
  - Malaise [Unknown]
  - Hepatic failure [Not Recovered/Not Resolved]
  - Cardiac failure [Unknown]
  - Hypertension [Unknown]
  - Renal failure [Unknown]
  - Heart transplant rejection [Unknown]
  - Blindness [Unknown]
  - Myocardial infarction [Not Recovered/Not Resolved]
  - Renal failure [Not Recovered/Not Resolved]

NARRATIVE: CASE EVENT DATE: 20180709
